FAERS Safety Report 26111593 (Version 1)
Quarter: 2025Q4

REPORT INFORMATION
  Report Type: Spontaneous
  Country: EU (occurrence: EU)
  Receive Date: 20251202
  Receipt Date: 20251202
  Transmission Date: 20260117
  Serious: Yes (Hospitalization)
  Sender: RANBAXY
  Company Number: None

PATIENT
  Age: 81 Year
  Sex: Male

DRUGS (2)
  1. CLOPIDOGREL [Interacting]
     Active Substance: CLOPIDOGREL BISULFATE
     Indication: Vascular stent insertion
     Dosage: 75 MILLIGRAM, QD, 1 PER DAY
     Route: 048
     Dates: start: 20250610, end: 20250717
  2. ASPIRIN [Interacting]
     Active Substance: ASPIRIN
     Indication: Vascular stent insertion
     Dosage: 100 MILLIGRAM, QD, 1 PER DAY
     Route: 048
     Dates: start: 20250610, end: 20250717

REACTIONS (2)
  - Upper gastrointestinal haemorrhage [Recovered/Resolved]
  - Anaemia [Recovering/Resolving]

NARRATIVE: CASE EVENT DATE: 20250717
